FAERS Safety Report 5281235-5 (Version None)
Quarter: 2007Q1

REPORT INFORMATION
  Report Type: 
  Country: None (occurrence: None)
  Receive Date: 20070323
  Receipt Date: 20070314
  Transmission Date: 20070707
  Serious: Yes (Other)
  Sender: FDA-Public Use
  Company Number: 070315-0000298

PATIENT
  Age: 24 Week
  Sex: Male
  Weight: 62 kg

DRUGS (2)
  1. INDOCIN [Suspect]
     Indication: PATENT DUCTUS ARTERIOSUS
     Dosage: 0.2 MG/KG; QD;INJ
     Dates: start: 20060301, end: 20060310
  2. VANCOMYCIN HYDROCHLORIDE [Suspect]
     Indication: INFECTION
     Dosage: 10 MG/KG; QD; INJ
     Dates: start: 20060307, end: 20060310

REACTIONS (4)
  - DEAFNESS [None]
  - DEVELOPMENTAL DELAY [None]
  - GROWTH RETARDATION [None]
  - HYPERBILIRUBINAEMIA [None]
